FAERS Safety Report 26130274 (Version 1)
Quarter: 2025Q4

REPORT INFORMATION
  Report Type: Spontaneous
  Country: AU (occurrence: AU)
  Receive Date: 20251208
  Receipt Date: 20251208
  Transmission Date: 20260118
  Serious: Yes (Hospitalization)
  Sender: ACCORD
  Company Number: AU-MLMSERVICE-20251117-PI717884-00165-1

PATIENT
  Age: 51 Year
  Sex: Female

DRUGS (2)
  1. GEMCITABINE [Suspect]
     Active Substance: GEMCITABINE
     Indication: Metastatic carcinoma of the bladder
  2. CISPLATIN [Concomitant]
     Active Substance: CISPLATIN
     Indication: Metastatic carcinoma of the bladder

REACTIONS (3)
  - Thrombotic microangiopathy [Recovering/Resolving]
  - Acute kidney injury [Recovering/Resolving]
  - Septic shock [Recovering/Resolving]
